FAERS Safety Report 4515240-0 (Version None)
Quarter: 2004Q4

REPORT INFORMATION
  Report Type: 
  Country: None (occurrence: None)
  Receive Date: 20041126
  Receipt Date: 20041115
  Transmission Date: 20050328
  Serious: Yes (Hospitalization)
  Sender: FDA-Public Use
  Company Number: 2004093252

PATIENT
  Age: 75 Year
  Sex: Male

DRUGS (9)
  1. ALDACTONE [Suspect]
     Indication: ILL-DEFINED DISORDER
     Dosage: 1 DOSE FORM (INTERVAL: ONCE DAILY), ORAL
     Route: 048
  2. FUROSEMIDE [Suspect]
     Indication: ILL-DEFINED DISORDER
     Dosage: 20 MG (INTERVAL:  EVERY DAY), ORAL
     Route: 048
  3. ACETYLCYSTEINE [Suspect]
     Indication: UPPER RESPIRATORY TRACT INFECTION
     Dosage: 600 MG (200 MG, INTERVAL:  EVERY DAY), ORAL
     Route: 048
     Dates: start: 20040201, end: 20040208
  4. CELEBREX [Suspect]
     Indication: BACK PAIN
     Dosage: 1 DOSE FORM (INTERVAL: EVERY DAY), ORAL
     Route: 048
     Dates: start: 20030618, end: 20040215
  5. CELEBREX [Suspect]
     Indication: BONE PAIN
     Dosage: 1 DOSE FORM (INTERVAL: EVERY DAY), ORAL
     Route: 048
     Dates: start: 20030618, end: 20040215
  6. CEFACLOR HEUMANN (CEFACLOR MONOHYDRATE) [Suspect]
     Indication: UPPER RESPIRATORY TRACT INFECTION
     Dosage: 1 GRAM (500 MG, INTERVAL: EVERY DAY), ORAL
     Route: 048
     Dates: start: 20040201, end: 20040208
  7. PARACETAMOL (DI-GESIC) (PARACETAMOL) [Suspect]
     Indication: BACK PAIN
     Dosage: 4 DOSE FORMS (INTERVAL: EVERY DAY), ORAL
     Route: 048
     Dates: start: 20030618, end: 20040215
  8. PROPOXYPHENE HCL [Suspect]
     Indication: BACK PAIN
     Dosage: 4 DOSE FORMS (INTERVAL: EVERY DAY), ORAL
     Route: 048
     Dates: start: 20030618, end: 20040215
  9. PROPOXYPHENE HCL [Suspect]
     Indication: BONE PAIN
     Dosage: 4 DOSE FORMS (INTERVAL: EVERY DAY), ORAL
     Route: 048
     Dates: start: 20030618, end: 20040215

REACTIONS (2)
  - DRUG INEFFECTIVE [None]
  - TOXIC SKIN ERUPTION [None]
